FAERS Safety Report 7086150-2 (Version None)
Quarter: 2010Q4

REPORT INFORMATION
  Report Type: 
  Country: None (occurrence: None)
  Receive Date: 20101028
  Receipt Date: 20101018
  Transmission Date: 20110411
  Serious: Yes (Hospitalization)
  Sender: FDA-Public Use
  Company Number: TPH-00298

PATIENT
  Age: 22 Year
  Sex: Female

DRUGS (2)
  1. TRIQUILAR [Suspect]
     Indication: ORAL CONTRACEPTION
     Dosage: 1 DF ORAL
     Route: 048
     Dates: start: 20100401
  2. ORAL CONTRACEPTIVE NOS (ORAL CONTRACEPTIVE NOS) [Concomitant]

REACTIONS (3)
  - ABDOMINAL PAIN [None]
  - RENAL DISORDER [None]
  - THROMBOSIS [None]
